FAERS Safety Report 19970582 (Version 2)
Quarter: 2021Q4

REPORT INFORMATION
  Report Type: Spontaneous
  Country: US (occurrence: US)
  Receive Date: 20211019
  Receipt Date: 20211028
  Transmission Date: 20220303
  Serious: Yes (Other)
  Sender: FDA-Public Use
  Company Number: US-PFIZER INC-202101366521

PATIENT
  Age: 62 Year
  Sex: Female

DRUGS (2)
  1. IBRANCE [Suspect]
     Active Substance: PALBOCICLIB
     Indication: Breast cancer female
     Dosage: 125 MG, CYCLIC (1 TAB PO ONCE DAILY WITH FOOD FOR 21 DAYS ON, FOLLOWED BY 7 DAYS OFF)
     Route: 048
     Dates: start: 20210904
  2. IBRANCE [Suspect]
     Active Substance: PALBOCICLIB
     Dosage: 100 MG, CYCLIC  (1 TAB PO ONCE DAILY WITH FOOD FOR 21 DAYS ON, FOLLOWED BY 7 DAYS OFF)

REACTIONS (3)
  - Neutropenia [Unknown]
  - Bone pain [Unknown]
  - Dry mouth [Unknown]

NARRATIVE: CASE EVENT DATE: 20210101
